FAERS Safety Report 14024252 (Version 1)
Quarter: 2017Q3

REPORT INFORMATION
  Report Type: Spontaneous
  Country: JP (occurrence: JP)
  Receive Date: 20170929
  Receipt Date: 20170929
  Transmission Date: 20171128
  Serious: Yes (Other)
  Sender: FDA-Public Use
  Company Number: JP-JNJFOC-20170925786

PATIENT
  Age: 88 Year
  Sex: Male

DRUGS (2)
  1. TRAMCET [Suspect]
     Active Substance: ACETAMINOPHEN\TRAMADOL
     Indication: PAIN
     Route: 048
  2. KASHILON [Concomitant]
     Active Substance: CHONDROITIN SULFATE (BOVINE)\SODIUM SALICYLATE
     Route: 065

REACTIONS (1)
  - Duodenal ulcer [Recovered/Resolved]
